FAERS Safety Report 16489833 (Version 1)
Quarter: 2019Q2

REPORT INFORMATION
  Report Type: Spontaneous
  Country: CZ (occurrence: CZ)
  Receive Date: 20190628
  Receipt Date: 20190628
  Transmission Date: 20190711
  Serious: Yes (Life-Threatening, Other)
  Sender: FDA-Public Use
  Company Number: CZ-TEVA-2019-CZ-1067284

PATIENT
  Age: 42 Year
  Sex: Male
  Weight: 135 kg

DRUGS (4)
  1. OXALIPLATINA TEVA [Suspect]
     Active Substance: OXALIPLATIN
     Indication: ADENOCARCINOMA OF COLON
     Dates: start: 20181006, end: 20181106
  2. FLUOROURACIL. [Concomitant]
     Active Substance: FLUOROURACIL
  3. AVASTIN [Concomitant]
     Active Substance: BEVACIZUMAB
     Dosage: 1 HOUR BEFORE OXALIPLATINA ADMINISTRATION
  4. FOLINIC ACID [Concomitant]
     Active Substance: LEUCOVORIN
     Dosage: BEVACIZUMAB IS ADMINISTERED APPROXIMATELY ONE HOUR BEFORE OXA

REACTIONS (5)
  - Chest discomfort [Recovered/Resolved]
  - Erythema [Recovered/Resolved]
  - Hypersensitivity [Recovered/Resolved]
  - Rhinorrhoea [Recovered/Resolved]
  - Lacrimation increased [Recovered/Resolved]

NARRATIVE: CASE EVENT DATE: 20181106
